FAERS Safety Report 23268725 (Version 2)
Quarter: 2024Q1

REPORT INFORMATION
  Report Type: Spontaneous
  Country: US (occurrence: US)
  Receive Date: 20231206
  Receipt Date: 20240207
  Transmission Date: 20240410
  Serious: No
  Sender: FDA-Public Use
  Company Number: US-PFIZER INC-202300422929

PATIENT
  Age: 81 Year
  Sex: Male
  Weight: 91.63 kg

DRUGS (2)
  1. VERAPAMIL HCL [Suspect]
     Active Substance: VERAPAMIL HYDROCHLORIDE
     Indication: Blood pressure measurement
     Dosage: 37.5 MG, 1X/DAY, IN MORNING
  2. ATENOLOL [Suspect]
     Active Substance: ATENOLOL
     Indication: Blood pressure measurement
     Dosage: 25 MG, 1X/DAY, IN THE AFTERNOON

REACTIONS (1)
  - Drug ineffective [Unknown]
